FAERS Safety Report 23769865 (Version 1)
Quarter: 2024Q2

REPORT INFORMATION
  Report Type: Spontaneous
  Country: US (occurrence: US)
  Receive Date: 20240422
  Receipt Date: 20240422
  Transmission Date: 20240716
  Serious: Yes (Disabling)
  Sender: FDA-Public Use
  Company Number: US-PFIZER INC-910625-SK060

PATIENT
  Age: 68 Year
  Sex: Male

DRUGS (3)
  1. FLAGYL [Suspect]
     Active Substance: METRONIDAZOLE\METRONIDAZOLE HYDROCHLORIDE
     Indication: Osteomyelitis
     Dosage: 500 MG, 2X/DAY
     Route: 048
     Dates: start: 19910401, end: 19910520
  2. FLAGYL [Suspect]
     Active Substance: METRONIDAZOLE\METRONIDAZOLE HYDROCHLORIDE
     Indication: Infusion
  3. FLAGYL [Suspect]
     Active Substance: METRONIDAZOLE\METRONIDAZOLE HYDROCHLORIDE
     Indication: Bacterial infection

REACTIONS (11)
  - Ataxia [Recovered/Resolved]
  - Neuropathy peripheral [Not Recovered/Not Resolved]
  - Confusional state [Unknown]
  - Tinnitus [Unknown]
  - Ototoxicity [Unknown]
  - Deafness [Unknown]
  - Personality disorder [Unknown]
  - Hypoacusis [Unknown]
  - Disorientation [Unknown]
  - Neglect of personal appearance [Unknown]
  - Speech disorder [Unknown]

NARRATIVE: CASE EVENT DATE: 19910101
